FAERS Safety Report 24652477 (Version 1)
Quarter: 2024Q4

REPORT INFORMATION
  Report Type: Spontaneous
  Country: US (occurrence: US)
  Receive Date: 20241122
  Receipt Date: 20241122
  Transmission Date: 20250115
  Serious: No
  Sender: ALVOGEN
  Company Number: US-ALVOGEN-2024095557

PATIENT
  Sex: Female

DRUGS (2)
  1. TERIPARATIDE [Suspect]
     Active Substance: TERIPARATIDE
     Indication: Osteoporosis
     Dosage: PREVIOUS EXPERIENCE OF PROBABLY 6-7 MONTHS OR MORE?620 MCG/2.48 ML (250 MCG/ML)?20 MCG/DOSE
  2. TERIPARATIDE [Suspect]
     Active Substance: TERIPARATIDE
     Indication: Osteoporosis
     Dosage: EXP. DATE: UU-JUN-2026?620 MCG/2.48 ML (250 MCG/ML)?20 MCG/DOSE
     Dates: start: 20240917

REACTIONS (4)
  - Device malfunction [Unknown]
  - Device operational issue [Unknown]
  - Drug dose omission by device [Unknown]
  - Product storage error [Unknown]

NARRATIVE: CASE EVENT DATE: 20240920
